FAERS Safety Report 8910578 (Version 1)
Quarter: 2012Q4

REPORT INFORMATION
  Report Type: 
  Country: US (occurrence: US)
  Receive Date: 20121114
  Receipt Date: 20121114
  Transmission Date: 20130627
  Serious: Yes (Hospitalization)
  Sender: FDA-Public Use
  Company Number: US-GLAXOSMITHKLINE-A1000559A

PATIENT
  Age: 62 Year
  Sex: Female

DRUGS (3)
  1. PROMACTA [Suspect]
     Indication: IDIOPATHIC THROMBOCYTOPENIC PURPURA
     Route: 048
     Dates: start: 2009
  2. VITAMINS [Concomitant]
  3. AMBIEN [Concomitant]

REACTIONS (7)
  - Drug ineffective [Not Recovered/Not Resolved]
  - Platelet count decreased [Unknown]
  - Splenectomy [Unknown]
  - Cholecystitis infective [Unknown]
  - Depression [Unknown]
  - Gallbladder enlargement [Unknown]
  - Adverse event [Unknown]
